FAERS Safety Report 9697953 (Version 1)
Quarter: 2013Q4

REPORT INFORMATION
  Report Type: Spontaneous
  Country: IT (occurrence: None)
  Receive Date: 20131118
  Receipt Date: 20131118
  Transmission Date: 20140711
  Serious: Yes (Hospitalization)
  Sender: FDA-Public Use
  Company Number: 2013P1020903

PATIENT
  Sex: 0

DRUGS (6)
  1. SERTRALINE [Suspect]
  2. DIGOXIN [Suspect]
  3. FUROSEMIDE [Suspect]
  4. TRAZODONE [Suspect]
  5. RAMIPRIL [Suspect]
  6. CANRENOATE POTASSIUM [Suspect]

REACTIONS (3)
  - Drug interaction [None]
  - Arrhythmia [None]
  - Electrocardiogram QT prolonged [None]
